FAERS Safety Report 13054765 (Version 1)
Quarter: 2016Q4

REPORT INFORMATION
  Report Type: Spontaneous
  Country: US (occurrence: US)
  Receive Date: 20161222
  Receipt Date: 20161222
  Transmission Date: 20170207
  Serious: Yes (Other)
  Sender: FDA-Public Use
  Company Number: US-VIIV HEALTHCARE LIMITED-US2016GSK189321

PATIENT
  Age: 30 Year
  Sex: Male

DRUGS (2)
  1. EMTRICITABINE + TENOFOVIR [Suspect]
     Active Substance: EMTRICITABINE\TENOFOVIR
     Indication: ACQUIRED IMMUNODEFICIENCY SYNDROME
  2. DOLUTEGRAVIR [Suspect]
     Active Substance: DOLUTEGRAVIR
     Indication: ACQUIRED IMMUNODEFICIENCY SYNDROME

REACTIONS (14)
  - Tachycardia [Unknown]
  - Hypotension [Unknown]
  - Pneumonia [Unknown]
  - Cough [Unknown]
  - Pyrexia [Unknown]
  - Respiratory failure [Unknown]
  - Sputum purulent [Unknown]
  - Lethargy [Unknown]
  - Breath sounds abnormal [Unknown]
  - Lung infiltration [Unknown]
  - Lymphadenopathy [Unknown]
  - Choking sensation [Unknown]
  - Hypoxia [Unknown]
  - Shock [Unknown]
